FAERS Safety Report 8348780-7 (Version None)
Quarter: 2012Q2

REPORT INFORMATION
  Report Type: 
  Country: None (occurrence: None)
  Receive Date: 20120510
  Receipt Date: 20120507
  Transmission Date: 20120825
  Serious: No
  Sender: FDA-Public Use
  Company Number: US-PFIZER INC-2012111409

PATIENT
  Sex: Female
  Weight: 77.551 kg

DRUGS (8)
  1. NORVASC [Concomitant]
     Dosage: UNK
  2. EFFIENT [Concomitant]
     Indication: ANTICOAGULANT THERAPY
     Dosage: 10 MG, UNK
  3. KEPPRA [Concomitant]
     Indication: CONVULSION
     Dosage: 500 MG, 2X/DAY
  4. DILANTIN [Suspect]
     Dosage: 200 MG, 2X/DAY
     Route: 048
  5. ASPIRIN [Concomitant]
     Dosage: UNK, 1X/DAY
  6. LETROZOLE [Concomitant]
     Indication: BREAST CANCER
     Dosage: UNK
  7. DILANTIN [Suspect]
     Indication: CONVULSION
     Dosage: 500 MG, IN A DAY
     Route: 048
  8. LIPITOR [Concomitant]
     Dosage: UNK, 1X/DAY

REACTIONS (1)
  - HYPOTENSION [None]
